FAERS Safety Report 17834351 (Version 1)
Quarter: 2020Q2

REPORT INFORMATION
  Report Type: Spontaneous
  Country: US (occurrence: US)
  Receive Date: 20200528
  Receipt Date: 20200528
  Transmission Date: 20200714
  Serious: No
  Sender: FDA-Public Use
  Company Number: None

PATIENT
  Age: 59 Year
  Sex: Female
  Weight: 127.1 kg

DRUGS (18)
  1. HUMALOG [Concomitant]
     Active Substance: INSULIN LISPRO
  2. DOCUSATE [Concomitant]
     Active Substance: DOCUSATE
  3. METOLAZONE. [Concomitant]
     Active Substance: METOLAZONE
  4. ELIQUIS [Concomitant]
     Active Substance: APIXABAN
  5. TRESIBA [Concomitant]
     Active Substance: INSULIN DEGLUDEC
  6. ACETAMINOPHEN. [Concomitant]
     Active Substance: ACETAMINOPHEN
  7. CYCLOBENZAPRINE. [Concomitant]
     Active Substance: CYCLOBENZAPRINE
  8. POTASSIUM [Concomitant]
     Active Substance: POTASSIUM
  9. FERROUS SULFATE. [Concomitant]
     Active Substance: FERROUS SULFATE
  10. PRALUENT [Suspect]
     Active Substance: ALIROCUMAB
     Indication: HYPERLIPIDAEMIA
     Dosage: ?          OTHER FREQUENCY:EVERY 14 DAYS;?
     Route: 058
     Dates: start: 20200312
  11. LINZESS [Concomitant]
     Active Substance: LINACLOTIDE
  12. CARVEDILOL. [Concomitant]
     Active Substance: CARVEDILOL
  13. FUROSEMIDE. [Concomitant]
     Active Substance: FUROSEMIDE
  14. VICTOZA [Concomitant]
     Active Substance: LIRAGLUTIDE
  15. MULTIVITAMIN [Concomitant]
     Active Substance: VITAMINS
  16. NITROGLYCERIN SL [Concomitant]
     Active Substance: NITROGLYCERIN
  17. ONDANSETRON [Concomitant]
     Active Substance: ONDANSETRON
  18. DILTIAZEM. [Concomitant]
     Active Substance: DILTIAZEM

REACTIONS (3)
  - Influenza like illness [None]
  - Nasopharyngitis [None]
  - Vision blurred [None]

NARRATIVE: CASE EVENT DATE: 20200312
